FAERS Safety Report 14194940 (Version 5)
Quarter: 2018Q1

REPORT INFORMATION
  Report Type: Spontaneous
  Country: CN (occurrence: CN)
  Receive Date: 20171116
  Receipt Date: 20180202
  Transmission Date: 20180508
  Serious: Yes (Death, Other)
  Sender: FDA-Public Use
  Company Number: CN-B.I. PHARMACEUTICALS,INC./RIDGEFIELD-2017-BI-061511

PATIENT
  Age: 91 Year
  Sex: Male
  Weight: 73 kg

DRUGS (1)
  1. GILOTRIF [Suspect]
     Active Substance: AFATINIB
     Indication: SQUAMOUS CELL CARCINOMA OF LUNG
     Route: 048
     Dates: start: 20170727

REACTIONS (8)
  - Vomiting [Unknown]
  - Brain oedema [Unknown]
  - Back pain [Unknown]
  - Diarrhoea [Unknown]
  - Product quality issue [Unknown]
  - Hyponatraemia [Unknown]
  - Aspiration [Fatal]
  - Cardio-respiratory arrest [Fatal]

NARRATIVE: CASE EVENT DATE: 201708
